FAERS Safety Report 8605719-4 (Version None)
Quarter: 2012Q3

REPORT INFORMATION
  Report Type: 
  Country: None (occurrence: None)
  Receive Date: 20120807
  Receipt Date: 20120725
  Transmission Date: 20120928
  Serious: Yes (Death, Hospitalization)
  Sender: FDA-Public Use
  Company Number: AUR-APL-2012-03315

PATIENT
  Age: 65 Year
  Sex: Male

DRUGS (4)
  1. STAVUDINE [Concomitant]
  2. EFAVIRENZ [Concomitant]
  3. TRIMETHOPRIM + SULFAMETHOXAZOLE [Suspect]
     Indication: HIV INFECTION
     Dosage: ORAL
     Route: 048
  4. LAMIVUDINE [Concomitant]

REACTIONS (3)
  - ACUTE RESPIRATORY DISTRESS SYNDROME [None]
  - STEVENS-JOHNSON SYNDROME [None]
  - TOXIC EPIDERMAL NECROLYSIS [None]
